FAERS Safety Report 13454539 (Version 1)
Quarter: 2017Q2

REPORT INFORMATION
  Report Type: Spontaneous
  Country: US (occurrence: US)
  Receive Date: 20170418
  Receipt Date: 20170418
  Transmission Date: 20170830
  Serious: No
  Sender: FDA-Public Use
  Company Number: US-ALLERGAN-1701868US

PATIENT
  Age: 41 Year
  Sex: Female
  Weight: 58.96 kg

DRUGS (1)
  1. LATISSE [Suspect]
     Active Substance: BIMATOPROST
     Indication: GROWTH OF EYELASHES
     Dosage: 2 GTT, QD
     Route: 061
     Dates: start: 201610

REACTIONS (4)
  - Eye irritation [Unknown]
  - Ocular hyperaemia [Unknown]
  - Wrong technique in product usage process [Unknown]
  - Dry eye [Unknown]

NARRATIVE: CASE EVENT DATE: 201610
